FAERS Safety Report 24969987 (Version 1)
Quarter: 2025Q1

REPORT INFORMATION
  Report Type: Spontaneous
  Country: US (occurrence: None)
  Receive Date: 20250213
  Receipt Date: 20250213
  Transmission Date: 20250409
  Serious: Yes (Disabling)
  Sender: FDA-CTU
  Company Number: None

PATIENT
  Age: 48 Year
  Sex: Female
  Weight: 92.25 kg

DRUGS (1)
  1. HUMIRA [Suspect]
     Active Substance: ADALIMUMAB
     Indication: Psoriatic arthropathy
     Route: 058
     Dates: start: 20241208, end: 20250213

REACTIONS (7)
  - Drug ineffective [None]
  - Psoriasis [None]
  - Fatigue [None]
  - Hypersomnia [None]
  - Malaise [None]
  - Arthralgia [None]
  - Hair texture abnormal [None]

NARRATIVE: CASE EVENT DATE: 20250212
